FAERS Safety Report 8875824 (Version 1)
Quarter: 2012Q4

REPORT INFORMATION
  Report Type: 
  Country: US (occurrence: US)
  Receive Date: 20121023
  Receipt Date: 20121023
  Transmission Date: 20130627
  Serious: No
  Sender: FDA-Public Use
  Company Number: US-VERTEX PHARMACEUTICAL INC.-2012-023127

PATIENT
  Sex: Male
  Weight: 86 kg

DRUGS (9)
  1. VX-950 [Suspect]
     Indication: HEPATITIS C
     Dosage: 750 mg, tid
     Route: 048
     Dates: start: 2012
  2. PEGASYS [Concomitant]
     Indication: HEPATITIS C
     Dosage: 180 ?g, qw
     Route: 058
     Dates: start: 2012
  3. RIBAVIRIN [Concomitant]
     Indication: HEPATITIS C
     Dosage: 600 UNK, bid
     Dates: start: 2012
  4. LACTULOSE [Concomitant]
     Dosage: 10 gm/ 15 ml
  5. NADOLOL [Concomitant]
     Dosage: 20 mg, qd
  6. ASPIRIN [Concomitant]
     Dosage: 81 mg, qd
  7. LOVAZA [Concomitant]
     Dosage: 1 g, bid
  8. OMEPRAZOLE DR [Concomitant]
     Dosage: 20 mg, qd
  9. ACTOPLUS MET [Concomitant]
     Dosage: 15 mg- 500 mg, qd

REACTIONS (1)
  - Nasopharyngitis [Unknown]
